FAERS Safety Report 14768833 (Version 1)
Quarter: 2018Q2

REPORT INFORMATION
  Report Type: Spontaneous
  Country: GU (occurrence: GU)
  Receive Date: 20180411
  Receipt Date: 20180411
  Transmission Date: 20180711
  Serious: No
  Sender: FDA-Public Use
  Company Number: None

PATIENT
  Age: 69 Year
  Sex: Female
  Weight: 41.4 kg

DRUGS (8)
  1. CALCIUM 500 MG QD   (ONSET DATE APPROXIMATE) [Concomitant]
     Dates: start: 20160411
  2. AMLODIPINE [Suspect]
     Active Substance: AMLODIPINE BESYLATE
     Indication: HYPERTENSION
     Dates: start: 20161226, end: 20171116
  3. ATORVASTATIN 20 MG [Concomitant]
     Active Substance: ATORVASTATIN
     Dates: start: 20170921, end: 20180411
  4. ACAI 500 MG CAPSULE TID   (ONSET DATE APPROXIMATE) [Concomitant]
     Dates: start: 20130411
  5. NEURO PS 50 MG GOLD  (ONSET DATE APPROXIATE) [Concomitant]
     Dates: start: 20130411
  6. VITMAIN D 1000 IU [Concomitant]
     Dates: start: 20170829, end: 20180403
  7. OMEGA 3 1000 MG  (ONSET DATE APPROXIMATE) [Concomitant]
     Dates: start: 20130411, end: 20180411
  8. VITAMIN C 1000 MG  (ONSET DATE APPROXIMATE) [Concomitant]
     Dates: start: 20130411, end: 20180411

REACTIONS (5)
  - Paraesthesia [None]
  - Pain in extremity [None]
  - Constipation [None]
  - Neck pain [None]
  - Musculoskeletal pain [None]

NARRATIVE: CASE EVENT DATE: 20161228
